FAERS Safety Report 11087000 (Version 1)
Quarter: 2015Q2

REPORT INFORMATION
  Report Type: Spontaneous
  Country: US (occurrence: None)
  Receive Date: 20150501
  Receipt Date: 20150501
  Transmission Date: 20150821
  Serious: No
  Sender: FDA-Public Use
  Company Number: None

PATIENT
  Age: 57 Year
  Sex: Female

DRUGS (4)
  1. CIPRO [Suspect]
     Active Substance: CIPROFLOXACIN HYDROCHLORIDE
     Dosage: 500 1PILL, TWICE DAILY, TAKEN BY MOUTH
     Route: 048
  2. SYNTHROID [Concomitant]
     Active Substance: LEVOTHYROXINE SODIUM
  3. VITAMIN E [Concomitant]
     Active Substance: .ALPHA.-TOCOPHEROL
  4. ZANTREX BLACK [Concomitant]

REACTIONS (11)
  - Rash [None]
  - Nasal congestion [None]
  - Erythema [None]
  - Dizziness [None]
  - Fatigue [None]
  - Insomnia [None]
  - Peripheral swelling [None]
  - Formication [None]
  - Swelling face [None]
  - Abnormal dreams [None]
  - Abdominal discomfort [None]

NARRATIVE: CASE EVENT DATE: 20150428
